FAERS Safety Report 6729432-3 (Version None)
Quarter: 2010Q2

REPORT INFORMATION
  Report Type: 
  Country: None (occurrence: None)
  Receive Date: 20100518
  Receipt Date: 20100511
  Transmission Date: 20101027
  Serious: Yes (Hospitalization)
  Sender: FDA-Public Use
  Company Number: US-BIOGENIDEC-2010BI015499

PATIENT
  Age: 66 Year
  Sex: Female
  Weight: 90 kg

DRUGS (4)
  1. AVONEX [Suspect]
     Indication: MULTIPLE SCLEROSIS
     Route: 030
  2. AVENTYL HYDROCHLORIDE [Concomitant]
     Indication: MUSCLE TWITCHING
     Dates: start: 19920101
  3. PAMELOR [Concomitant]
  4. UNKNOWN MEDICATIONS (NOS) [Concomitant]

REACTIONS (3)
  - MULTIPLE DRUG OVERDOSE [None]
  - PAIN IN EXTREMITY [None]
  - SUICIDE ATTEMPT [None]
